FAERS Safety Report 5446533-0 (Version None)
Quarter: 2007Q3

REPORT INFORMATION
  Report Type: 
  Country: None (occurrence: None)
  Receive Date: 20070907
  Receipt Date: 20070830
  Transmission Date: 20080115
  Serious: Yes (Hospitalization)
  Sender: FDA-Public Use
  Company Number: VE-AMGEN-US241939

PATIENT
  Age: 47 Year
  Sex: Male

DRUGS (2)
  1. ENBREL [Suspect]
     Indication: PSORIASIS
     Route: 058
     Dates: start: 20070501, end: 20070801
  2. NSAID'S [Suspect]
     Indication: PSORIASIS
     Dates: end: 20070825

REACTIONS (1)
  - PURPURA NON-THROMBOCYTOPENIC [None]
